FAERS Safety Report 9870549 (Version 1)
Quarter: 2014Q1

REPORT INFORMATION
  Report Type: Spontaneous
  Country: JP (occurrence: JP)
  Receive Date: 20140205
  Receipt Date: 20140205
  Transmission Date: 20141002
  Serious: Yes (Other)
  Sender: FDA-Public Use
  Company Number: JP-WATSON-2014-01209

PATIENT
  Age: 70 Year
  Sex: Male

DRUGS (1)
  1. ETODOLAC (WATSON LABORATORIES) [Suspect]
     Indication: BACK PAIN
     Dosage: 400 MG, DAILY
     Route: 065

REACTIONS (1)
  - Acute generalised exanthematous pustulosis [Recovered/Resolved]
